FAERS Safety Report 24253389 (Version 2)
Quarter: 2024Q3

REPORT INFORMATION
  Report Type: Spontaneous
  Country: IN (occurrence: IN)
  Receive Date: 20240827
  Receipt Date: 20240913
  Transmission Date: 20241017
  Serious: Yes (Other)
  Sender: RANBAXY
  Company Number: IN-SUN PHARMACEUTICAL INDUSTRIES LTD-2024R1-464574

PATIENT
  Age: 79 Year
  Sex: Female

DRUGS (7)
  1. ATOMOXETINE [Suspect]
     Active Substance: ATOMOXETINE HYDROCHLORIDE
     Indication: Major depression
     Dosage: 25-60MG
     Route: 065
     Dates: start: 202304
  2. LORAZEPAM [Suspect]
     Active Substance: LORAZEPAM
     Indication: Major depression
     Dosage: 0.5 MILLIGRAM, QD
     Route: 065
  3. DESVENLAFAXINE [Suspect]
     Active Substance: DESVENLAFAXINE
     Indication: Major depression
     Dosage: 100 MILLIGRAM, QD
     Route: 065
     Dates: start: 202208
  4. PHENTERMINE [Suspect]
     Active Substance: PHENTERMINE\PHENTERMINE HYDROCHLORIDE
     Indication: Asthenia
     Dosage: 37.5 MILLIGRAM, QD
     Route: 065
     Dates: start: 202309
  5. PHENTERMINE [Suspect]
     Active Substance: PHENTERMINE\PHENTERMINE HYDROCHLORIDE
     Indication: Weight control
  6. BUSPIRONE [Suspect]
     Active Substance: BUSPIRONE HYDROCHLORIDE
     Indication: Major depression
     Dosage: 20 MILLIGRAM, QD
     Route: 065
     Dates: start: 202208
  7. HYDROXYZINE [Suspect]
     Active Substance: HYDROXYZINE HYDROCHLORIDE
     Indication: Major depression
     Dosage: 25 MILLIGRAM, QD
     Route: 065

REACTIONS (2)
  - Tardive dyskinesia [Unknown]
  - Condition aggravated [Unknown]
